FAERS Safety Report 8498783-7 (Version None)
Quarter: 2012Q3

REPORT INFORMATION
  Report Type: 
  Country: None (occurrence: None)
  Receive Date: 20120709
  Receipt Date: 20120628
  Transmission Date: 20120928
  Serious: Yes (Hospitalization)
  Sender: FDA-Public Use
  Company Number: DK-RB-041997-12

PATIENT
  Sex: Male
  Weight: 80 kg

DRUGS (5)
  1. ENALAPRIL MALEATE [Concomitant]
     Indication: HYPERTENSION
     Dosage: UNKNOWN DOSAGE DETAILS
     Route: 048
  2. SUBUTEX [Suspect]
     Indication: DRUG WITHDRAWAL SYNDROME
     Dosage: SINGLE INTAKE
     Route: 060
     Dates: start: 20120620, end: 20120620
  3. SIMVASTATIN [Concomitant]
     Indication: HYPERCHOLESTEROLAEMIA
     Route: 048
  4. MELATONIN [Concomitant]
     Indication: INSOMNIA
     Route: 048
  5. ANTABUSE [Concomitant]
     Indication: ALCOHOL ABUSE
     Dosage: UNKNOWN DOSAGE DETAILS
     Route: 048

REACTIONS (3)
  - SPEECH DISORDER [None]
  - MIOSIS [None]
  - DYSSTASIA [None]
